FAERS Safety Report 4655822-9 (Version None)
Quarter: 2005Q2

REPORT INFORMATION
  Report Type: 
  Country: None (occurrence: None)
  Receive Date: 20050509
  Receipt Date: 20050425
  Transmission Date: 20051028
  Serious: Yes (Death, Life-Threatening, Hospitalization, Other)
  Sender: FDA-Public Use
  Company Number: GB-JNJFOC-20050405976

PATIENT
  Sex: Female
  Weight: 71 kg

DRUGS (11)
  1. REMICADE [Suspect]
     Indication: RHEUMATOID ARTHRITIS
     Route: 042
  2. AZATHIOPRINE [Concomitant]
  3. LANSOPRAZOLE [Concomitant]
  4. PREDNISOLONE [Concomitant]
  5. FLUOXETINE [Concomitant]
  6. ATENOLOL [Concomitant]
  7. RISEDRONATE SODIUM [Concomitant]
  8. ATROVENT [Concomitant]
  9. VENTOLIN HFA [Concomitant]
  10. ASPIRIN [Concomitant]
  11. FRUSEMIDE [Concomitant]

REACTIONS (6)
  - BRONCHOPNEUMONIA [None]
  - CARDIAC FAILURE [None]
  - FEMUR FRACTURE [None]
  - LOWER RESPIRATORY TRACT INFECTION [None]
  - PULMONARY OEDEMA [None]
  - STAPHYLOCOCCAL INFECTION [None]
